FAERS Safety Report 6504502-3 (Version None)
Quarter: 2009Q4

REPORT INFORMATION
  Report Type: 
  Country: None (occurrence: None)
  Receive Date: 20091215
  Receipt Date: 20091204
  Transmission Date: 20100525
  Serious: Yes (Hospitalization)
  Sender: FDA-Public Use
  Company Number: 2009AC000144

PATIENT
  Age: 71 Year
  Sex: Male

DRUGS (15)
  1. DIGOXIN [Suspect]
     Dosage: 0.125 MG; PO
     Route: 048
  2. AMLODIPINE [Concomitant]
  3. METOPROLOL TARTRATE [Concomitant]
  4. SIMVASTATIN [Concomitant]
  5. PLAVIX [Concomitant]
  6. ASPIRIN [Concomitant]
  7. FELODIPINE [Concomitant]
  8. LOPRESSOR [Concomitant]
  9. ADVAIR DISKUS 100/50 [Concomitant]
  10. ZOCOR [Concomitant]
  11. AMLODIPINE [Concomitant]
  12. METOPROLOL TARTRATE [Concomitant]
  13. SIMVASTATIN [Concomitant]
  14. PLAVIX [Concomitant]
  15. ASPIRIN [Concomitant]

REACTIONS (10)
  - ANGINA PECTORIS [None]
  - ANGLE CLOSURE GLAUCOMA [None]
  - CATARACT [None]
  - CHEST PAIN [None]
  - CORONARY ARTERY DISEASE [None]
  - COUGH [None]
  - MACULAR DEGENERATION [None]
  - PALPITATIONS [None]
  - POLYURIA [None]
  - VISUAL IMPAIRMENT [None]
